FAERS Safety Report 8023818-5 (Version None)
Quarter: 2012Q1

REPORT INFORMATION
  Report Type: 
  Country: None (occurrence: None)
  Receive Date: 20120105
  Receipt Date: 20120103
  Transmission Date: 20120608
  Serious: Yes (Hospitalization)
  Sender: FDA-Public Use
  Company Number: US-JNJFOC-20111205356

PATIENT
  Sex: Male
  Weight: 136.08 kg

DRUGS (23)
  1. FENTANYL-100 [Suspect]
     Route: 062
  2. ZESTRIL [Concomitant]
     Indication: HYPERTENSION
     Route: 048
     Dates: start: 20080101
  3. GLIPIZIDE [Concomitant]
     Indication: DIABETES MELLITUS
     Route: 048
     Dates: start: 20020101
  4. NEXIUM [Concomitant]
     Indication: GASTRIC ULCER
     Route: 048
     Dates: start: 20080101
  5. METOLAZONE [Concomitant]
     Indication: SWELLING
     Route: 048
     Dates: start: 20111001
  6. FLOMAX [Concomitant]
     Indication: DYSURIA
     Route: 048
     Dates: start: 20090101
  7. AVODART [Concomitant]
     Indication: PROSTATIC DISORDER
     Route: 048
     Dates: start: 20080101
  8. FENTANYL-100 [Suspect]
     Indication: PAIN
     Route: 062
  9. FENTANYL-100 [Suspect]
     Route: 062
     Dates: start: 20100101
  10. ZOCOR [Concomitant]
     Indication: BLOOD CHOLESTEROL
     Route: 048
     Dates: start: 20100101
  11. BACLOFEN [Concomitant]
     Indication: MUSCLE SPASMS
     Route: 048
     Dates: start: 20080101
  12. FLOMAX [Concomitant]
     Indication: PROSTATIC DISORDER
     Route: 048
     Dates: start: 20090101
  13. LYRICA [Concomitant]
     Indication: NERVE INJURY
     Route: 048
     Dates: start: 20100101
  14. FENTANYL-100 [Suspect]
     Route: 062
     Dates: start: 20110801
  15. LOPRESSOR [Concomitant]
     Indication: HYPERTENSION
     Route: 048
     Dates: start: 20080101
  16. METOPROLOL SUCCINATE [Concomitant]
     Indication: HYPERTENSION
     Route: 048
     Dates: start: 20080101
  17. OXYCONTIN [Concomitant]
     Indication: PAIN
     Route: 048
     Dates: start: 20100101
  18. FUROSEMIDE [Concomitant]
     Indication: SWELLING
     Route: 048
     Dates: start: 20111001
  19. CYMBALTA [Concomitant]
     Indication: DEPRESSION
     Route: 048
     Dates: start: 20060101
  20. TRICOR [Concomitant]
     Indication: BLOOD CHOLESTEROL
     Route: 048
     Dates: start: 20090101
  21. METFORMIN HCL [Concomitant]
     Indication: DIABETES MELLITUS
     Route: 048
     Dates: start: 20000101
  22. CELEBREX [Concomitant]
     Indication: ARTHRALGIA
     Route: 048
     Dates: start: 20090101
  23. AVODART [Concomitant]
     Indication: DYSURIA
     Route: 048
     Dates: start: 20080101

REACTIONS (4)
  - DRUG INEFFECTIVE [None]
  - PULMONARY THROMBOSIS [None]
  - PRODUCT QUALITY ISSUE [None]
  - WRONG TECHNIQUE IN DRUG USAGE PROCESS [None]
